FAERS Safety Report 8112986-2 (Version None)
Quarter: 2012Q1

REPORT INFORMATION
  Report Type: 
  Country: None (occurrence: None)
  Receive Date: 20120203
  Receipt Date: 20120122
  Transmission Date: 20120608
  Serious: Yes (Hospitalization)
  Sender: FDA-Public Use
  Company Number: CA-ELI_LILLY_AND_COMPANY-CA201201007038

PATIENT
  Age: 71 Year
  Sex: Female

DRUGS (10)
  1. MAGNESIUM [Concomitant]
     Dosage: 250 MG, QD
  2. CELEBREX [Concomitant]
     Dosage: 200 MG, PRN
  3. VITALUX [Concomitant]
     Dosage: UNK, QD
  4. FORTEO [Suspect]
     Dosage: 20 UG, QD
     Route: 058
  5. DIOVAN [Concomitant]
     Dosage: 160 MG, QD
  6. RABEPRAZOLE SODIUM [Concomitant]
     Dosage: 20 MG, QD
  7. LOVAZA [Concomitant]
     Dosage: UNK, QD
  8. FORTEO [Suspect]
     Indication: OSTEOPOROSIS
     Dosage: 20 UG, QD
     Route: 058
     Dates: start: 20110610
  9. EXTRA STRENGTH TYLENOL [Concomitant]
     Dosage: UNK, PRN
  10. TYLENOL WITH CODEIN #3 [Concomitant]
     Dosage: UNK, PRN

REACTIONS (1)
  - DEVICE BREAKAGE [None]
